FAERS Safety Report 8300379-4 (Version None)
Quarter: 2012Q2

REPORT INFORMATION
  Report Type: 
  Country: None (occurrence: None)
  Receive Date: 20120417
  Receipt Date: 20120404
  Transmission Date: 20120825
  Serious: Yes (Hospitalization)
  Sender: FDA-Public Use
  Company Number: DSA_56126_2012

PATIENT
  Sex: Female

DRUGS (2)
  1. WELLBUTRIN XL [Suspect]
     Indication: PRODUCT USED FOR UNKNOWN INDICATION
     Dosage: (300 MG QD ORAL) ; (150 MG QD ORAL)
     Route: 048
     Dates: start: 20091125, end: 20100114
  2. WELLBUTRIN XL [Suspect]
     Indication: PRODUCT USED FOR UNKNOWN INDICATION
     Dosage: (300 MG QD ORAL) ; (150 MG QD ORAL)
     Route: 048
     Dates: start: 20100115

REACTIONS (2)
  - CONVULSION [None]
  - FOAMING AT MOUTH [None]
